FAERS Safety Report 4365453-6 (Version None)
Quarter: 2004Q2

REPORT INFORMATION
  Report Type: 
  Country: None (occurrence: None)
  Receive Date: 20040525
  Receipt Date: 20040525
  Transmission Date: 20050107
  Serious: Yes (Hospitalization)
  Sender: FDA-Public Use
  Company Number: None

PATIENT
  Age: 88 Year
  Sex: Female
  Weight: 47.4 kg

DRUGS (12)
  1. COUMADIN [Suspect]
     Indication: CEREBROVASCULAR ACCIDENT PROPHYLAXIS
     Dates: end: 20040112
  2. DIGOXIN [Concomitant]
  3. LEVOTHYROXINE SODIUM [Concomitant]
  4. PROTONIX [Concomitant]
  5. BISACODYL [Concomitant]
  6. ZOLOFT [Concomitant]
  7. MOM [Concomitant]
  8. DEMECOCYCLINE [Concomitant]
  9. GLUCOTROL XL [Concomitant]
  10. EFFEXOR [Concomitant]
  11. MEGACE [Concomitant]
  12. TIAZAC [Concomitant]

REACTIONS (1)
  - HAEMATEMESIS [None]
